FAERS Safety Report 8144807-6 (Version None)
Quarter: 2012Q1

REPORT INFORMATION
  Report Type: 
  Country: None (occurrence: None)
  Receive Date: 20120214
  Receipt Date: 20120130
  Transmission Date: 20120608
  Serious: Yes (Hospitalization)
  Sender: FDA-Public Use
  Company Number: AMAG201200022

PATIENT
  Age: 79 Year
  Sex: Female

DRUGS (1)
  1. FERAHEME [Suspect]
     Dates: start: 20100726, end: 20100726

REACTIONS (2)
  - HYPERTENSION [None]
  - SYNCOPE [None]
